FAERS Safety Report 6148091-4 (Version None)
Quarter: 2009Q2

REPORT INFORMATION
  Report Type: 
  Country: None (occurrence: None)
  Receive Date: 20090408
  Receipt Date: 20090401
  Transmission Date: 20091009
  Serious: Yes (Hospitalization)
  Sender: FDA-Public Use
  Company Number: B0569108A

PATIENT
  Sex: Male

DRUGS (5)
  1. AVODART [Suspect]
     Indication: PROSTATISM
     Route: 048
  2. ARICEPT [Suspect]
     Indication: DRUG USE FOR UNKNOWN INDICATION
     Route: 048
  3. UNSPECIFIED DRUG [Suspect]
     Indication: DRUG USE FOR UNKNOWN INDICATION
     Dosage: 100MG PER DAY
     Route: 048
     Dates: start: 20090101
  4. TROMBYL [Concomitant]
  5. ATENOLOL [Concomitant]

REACTIONS (8)
  - ANOREXIA [None]
  - CONFUSIONAL STATE [None]
  - FALL [None]
  - HYPERHIDROSIS [None]
  - SKIN ULCER [None]
  - SUTURE INSERTION [None]
  - URINARY TRACT INFECTION [None]
  - WEIGHT DECREASED [None]
